FAERS Safety Report 6369971-0 (Version None)
Quarter: 2009Q3

REPORT INFORMATION
  Report Type: 
  Country: None (occurrence: None)
  Receive Date: 20090923
  Receipt Date: 20080317
  Transmission Date: 20100115
  Serious: Yes (Hospitalization)
  Sender: FDA-Public Use
  Company Number: US-ASTRAZENECA-2006UW06050

PATIENT
  Age: 615 Month
  Sex: Female
  Weight: 88 kg

DRUGS (10)
  1. SEROQUEL [Suspect]
     Indication: INSOMNIA
     Route: 048
     Dates: start: 20030101, end: 20060101
  2. SEROQUEL [Suspect]
     Route: 048
     Dates: start: 20040601, end: 20060210
  3. LASIX [Concomitant]
     Dates: start: 20040910
  4. NEXIUM [Concomitant]
     Dates: start: 20040910
  5. PREDNISONE TAB [Concomitant]
     Dosage: 20 - 40 MG
     Dates: start: 20010910
  6. ATACAND [Concomitant]
     Dates: start: 20040912
  7. CYCLOPHOSPHAMIDE [Concomitant]
     Dates: start: 20040912
  8. PROTONIX [Concomitant]
     Dates: start: 20040912
  9. COREG [Concomitant]
     Dates: start: 20040912
  10. AZATHIOPRINE [Concomitant]
     Dates: start: 20040920

REACTIONS (3)
  - DIABETES MELLITUS [None]
  - DIABETIC KETOACIDOSIS [None]
  - RENAL FAILURE ACUTE [None]
